FAERS Safety Report 7912154-0 (Version None)
Quarter: 2011Q4

REPORT INFORMATION
  Report Type: 
  Country: None (occurrence: None)
  Receive Date: 20111114
  Receipt Date: 20111111
  Transmission Date: 20120403
  Serious: Yes (Death, Hospitalization)
  Sender: FDA-Public Use
  Company Number: IT-SANOFI-AVENTIS-2011SA074362

PATIENT
  Age: 90 Year
  Sex: Female

DRUGS (8)
  1. LASIX [Concomitant]
     Route: 048
     Dates: start: 20110101, end: 20111013
  2. OMEPRAZOLE [Concomitant]
     Route: 048
     Dates: start: 20110101, end: 20111015
  3. MADOPAR [Concomitant]
     Route: 048
     Dates: start: 20110101, end: 20111015
  4. LANOXIN [Concomitant]
     Route: 048
     Dates: start: 20110101, end: 20111015
  5. POTASSIUM CHLORIDE [Suspect]
     Route: 048
     Dates: start: 20110901, end: 20111001
  6. ENOXAPARIN SODIUM [Suspect]
     Indication: ATRIAL FIBRILLATION
     Route: 058
     Dates: start: 20110901, end: 20111001
  7. ALLOPURINOL [Suspect]
     Route: 048
     Dates: start: 20110901, end: 20111001
  8. ASPIRIN [Concomitant]
     Route: 048
     Dates: start: 20110101, end: 20111015

REACTIONS (1)
  - STEVENS-JOHNSON SYNDROME [None]
